FAERS Safety Report 12183198 (Version 12)
Quarter: 2017Q2

REPORT INFORMATION
  Report Type: Report from Study
  Country: CA (occurrence: CA)
  Receive Date: 20160316
  Receipt Date: 20170503
  Transmission Date: 20170830
  Serious: Yes (Hospitalization, Other)
  Sender: FDA-Public Use
  Company Number: PHHY2014CA096155

PATIENT
  Age: 78 Year
  Sex: Male

DRUGS (5)
  1. SANDOSTATIN LAR DEPOT [Suspect]
     Active Substance: OCTREOTIDE ACETATE
     Indication: NEUROENDOCRINE TUMOUR
     Dosage: 30 MG, QMO  (EVERY 4 WEEKS)
     Route: 030
     Dates: start: 20140605
  2. SANDOSTATIN LAR DEPOT [Suspect]
     Active Substance: OCTREOTIDE ACETATE
     Dosage: 60 MG, BIW (EVERY 2 WEEKS)
     Route: 030
     Dates: start: 20160704
  3. SANDOSTATIN LAR DEPOT [Suspect]
     Active Substance: OCTREOTIDE ACETATE
     Dosage: 60 MG, BIW (EVERY 2 WEEKS)
     Route: 030
     Dates: start: 20160627
  4. SANDOSTATIN LAR DEPOT [Suspect]
     Active Substance: OCTREOTIDE ACETATE
     Dosage: 60 MG, QMO (EVERY 4 WEEK)
     Route: 030
     Dates: start: 20150406
  5. SANDOSTATIN LAR DEPOT [Suspect]
     Active Substance: OCTREOTIDE ACETATE
     Dosage: 60 MG, BIW (EVERY 2 WEEKS)
     Route: 030
     Dates: start: 20150402

REACTIONS (20)
  - Cholecystitis [Unknown]
  - Pyrexia [Unknown]
  - Malaise [Unknown]
  - Inappropriate schedule of drug administration [Unknown]
  - Chest pain [Unknown]
  - Blood glucose increased [Unknown]
  - Flushing [Unknown]
  - Chest discomfort [Unknown]
  - Diarrhoea [Recovering/Resolving]
  - Loss of consciousness [Unknown]
  - Spinal cord neoplasm [Unknown]
  - Blood pressure diastolic decreased [Unknown]
  - Fluid retention [Unknown]
  - Syncope [Unknown]
  - Blood pressure increased [Unknown]
  - Malignant neoplasm progression [Unknown]
  - Metastasis [Unknown]
  - Blood pressure systolic increased [Unknown]
  - Hepatic neoplasm [Unknown]
  - Dyspnoea [Unknown]

NARRATIVE: CASE EVENT DATE: 201407
